FAERS Safety Report 23788989 (Version 2)
Quarter: 2024Q2

REPORT INFORMATION
  Report Type: Spontaneous
  Country: JP (occurrence: JP)
  Receive Date: 20240426
  Receipt Date: 20240501
  Transmission Date: 20240716
  Serious: Yes (Other)
  Sender: FDA-Public Use
  Company Number: JP-MLMSERVICE-20240416-PI028595-00218-1

PATIENT
  Age: 73 Year
  Sex: Female

DRUGS (4)
  1. METHOTREXATE SODIUM [Suspect]
     Active Substance: METHOTREXATE SODIUM
     Indication: Rheumatoid arthritis
     Dosage: 10 MG, WEEKLY
  2. FOLIC ACID [Concomitant]
     Active Substance: FOLIC ACID
     Dosage: 5 MG, WEEKLY
  3. ROSUVASTATIN CALCIUM [Concomitant]
     Active Substance: ROSUVASTATIN CALCIUM
     Dosage: 2.5 MG, 1X/DAY
  4. IGURATIMOD [Concomitant]
     Active Substance: IGURATIMOD
     Dosage: 25 MG, 1X/DAY

REACTIONS (3)
  - Incision site impaired healing [Recovered/Resolved]
  - Epstein Barr virus positive mucocutaneous ulcer [Recovered/Resolved]
  - Lymphoproliferative disorder [Unknown]

NARRATIVE: CASE EVENT DATE: 20210101
